FAERS Safety Report 25846603 (Version 1)
Quarter: 2025Q3

REPORT INFORMATION
  Report Type: Spontaneous
  Country: EU (occurrence: EU)
  Receive Date: 20250925
  Receipt Date: 20250925
  Transmission Date: 20251021
  Serious: Yes (Other)
  Sender: AUROBINDO
  Company Number: EU-BRISTOL-MYERS SQUIBB COMPANY-2025-118354

PATIENT
  Age: 56 Year
  Sex: Male
  Weight: 76.3 kg

DRUGS (5)
  1. OXALIPLATIN [Suspect]
     Active Substance: OXALIPLATIN
     Indication: Product used for unknown indication
     Route: 065
  2. NIVOLUMAB [Suspect]
     Active Substance: NIVOLUMAB
     Indication: Oesophageal adenocarcinoma
     Route: 042
     Dates: start: 20250214
  3. APREPITANT [Concomitant]
     Active Substance: APREPITANT
     Indication: Nausea
     Route: 065
  4. APREPITANT [Concomitant]
     Active Substance: APREPITANT
     Route: 065
  5. DIETARY SUPPLEMENT [Concomitant]
     Active Substance: DIETARY SUPPLEMENT
     Indication: Malnutrition
     Route: 065
     Dates: start: 20250303

REACTIONS (7)
  - Polyarthritis [Not Recovered/Not Resolved]
  - Neuropathy peripheral [Unknown]
  - Neutropenia [Unknown]
  - Latent tuberculosis [Unknown]
  - Asthenia [Unknown]
  - Tryptase increased [Unknown]
  - Hypersensitivity [Unknown]

NARRATIVE: CASE EVENT DATE: 20250403
